FAERS Safety Report 5366334-1 (Version None)
Quarter: 2007Q2

REPORT INFORMATION
  Report Type: 
  Country: None (occurrence: None)
  Receive Date: 20070620
  Receipt Date: 20070620
  Transmission Date: 20071010
  Serious: Yes (Hospitalization)
  Sender: FDA-Public Use
  Company Number: None

PATIENT
  Age: 41 Year
  Sex: Female

DRUGS (11)
  1. BEVACIZUMAB (GENENTECH) [Suspect]
     Indication: GLIOBLASTOMA MULTIFORME
     Dosage: 10 MG/KG
     Dates: start: 20070327
  2. ERLOTINIB (GENENTECH) [Suspect]
     Indication: GLIOBLASTOMA MULTIFORME
     Dosage: 200 MG/DAY
     Dates: start: 20070327
  3. PAXIL [Concomitant]
  4. PROTONIX [Concomitant]
  5. DEXAMETHASONE 0.5MG TAB [Concomitant]
  6. DILANTIN [Concomitant]
  7. LIPITOR [Concomitant]
  8. AMBIEN [Concomitant]
  9. ZITHROMAX [Concomitant]
  10. CLEOCIN T GEL [Concomitant]
  11. CLOTRIMAZOLE [Concomitant]

REACTIONS (9)
  - APHASIA [None]
  - BLINDNESS UNILATERAL [None]
  - CONFUSIONAL STATE [None]
  - CONVULSION [None]
  - HEADACHE [None]
  - HERPES SIMPLEX [None]
  - MUSCULAR WEAKNESS [None]
  - NUCLEAR MAGNETIC RESONANCE IMAGING BRAIN ABNORMAL [None]
  - VISION BLURRED [None]
